FAERS Safety Report 7378834-3 (Version None)
Quarter: 2011Q1

REPORT INFORMATION
  Report Type: 
  Country: None (occurrence: None)
  Receive Date: 20110328
  Receipt Date: 20110314
  Transmission Date: 20110831
  Serious: Yes (Other)
  Sender: FDA-Public Use
  Company Number: PHHY2011NL11537

PATIENT
  Sex: Male

DRUGS (8)
  1. PREDNISONE [Concomitant]
     Dosage: 5 MG, 2DD
  2. ZOMETA [Suspect]
     Dosage: 4 MG/5 ML PER 28 DAYS
     Route: 042
     Dates: start: 20110117
  3. DILANORM [Concomitant]
     Dosage: 1 DD
  4. ZOMETA [Suspect]
     Dosage: 4 MG/5 ML PER 28 DAYS
     Route: 042
     Dates: start: 20110314
  5. ZOMETA [Suspect]
     Dosage: 4 MG/5 ML PER 28 DAYS
     Route: 042
     Dates: start: 20110214
  6. ZOMETA [Suspect]
     Indication: PROSTATE CANCER METASTATIC
     Dosage: 4 MG/5 ML PER 28 DAYS
     Route: 042
     Dates: start: 20100726
  7. AVODART [Concomitant]
     Dosage: 0.5 MG, UNK
  8. CALCIUM WITH VITAMIN D [Concomitant]
     Dosage: 500 MG, 2DD

REACTIONS (5)
  - BONE PAIN [None]
  - FATIGUE [None]
  - CONFUSIONAL STATE [None]
  - GENERAL PHYSICAL HEALTH DETERIORATION [None]
  - ANXIETY [None]
